FAERS Safety Report 16464412 (Version 2)
Quarter: 2019Q3

REPORT INFORMATION
  Report Type: Spontaneous
  Country: US (occurrence: US)
  Receive Date: 20190621
  Receipt Date: 20190822
  Transmission Date: 20191004
  Serious: Yes (Hospitalization, Other)
  Sender: FDA-Public Use
  Company Number: US-PFIZER INC-2019030005

PATIENT
  Age: 29 Year
  Sex: Female

DRUGS (5)
  1. ORENCIA [Concomitant]
     Active Substance: ABATACEPT
     Indication: ACUTE MYELOID LEUKAEMIA
     Dosage: UNK
     Dates: start: 20190225, end: 20190301
  2. THIOTEPA. [Concomitant]
     Active Substance: THIOTEPA
     Indication: ACUTE MYELOID LEUKAEMIA
     Dosage: UNK
     Dates: start: 20190225, end: 20190301
  3. SUTENT [Suspect]
     Active Substance: SUNITINIB MALATE
     Indication: ACUTE LYMPHOCYTIC LEUKAEMIA
     Dosage: 25 MG, UNK
     Route: 048
     Dates: start: 20180817, end: 201903
  4. TOPOTECAN [Concomitant]
     Active Substance: TOPOTECAN HYDROCHLORIDE
     Indication: ACUTE MYELOID LEUKAEMIA
     Dosage: UNK
     Dates: start: 20190225, end: 20190301
  5. SUTENT [Suspect]
     Active Substance: SUNITINIB MALATE
     Indication: ACUTE MYELOID LEUKAEMIA
     Dosage: 12.5 MG, UNK
     Route: 048

REACTIONS (6)
  - Neutropenia [Unknown]
  - Mucosal inflammation [Unknown]
  - Neoplasm progression [Unknown]
  - Pneumonia [Unknown]
  - Influenza [Unknown]
  - Pancytopenia [Unknown]

NARRATIVE: CASE EVENT DATE: 20190225
